FAERS Safety Report 8247196-1 (Version None)
Quarter: 2012Q1

REPORT INFORMATION
  Report Type: 
  Country: None (occurrence: None)
  Receive Date: 20120330
  Receipt Date: 20120322
  Transmission Date: 20120608
  Serious: Yes (Hospitalization, Other)
  Sender: FDA-Public Use
  Company Number: US-BAYER-2011-085703

PATIENT
  Age: 32 Year
  Sex: Female
  Weight: 85 kg

DRUGS (17)
  1. YAZ [Suspect]
     Indication: CONTRACEPTION
     Dosage: UNK
     Dates: start: 20080421
  2. YASMIN [Suspect]
     Dosage: UNK
     Dates: start: 20091103
  3. YASMIN [Suspect]
     Dosage: UNK
     Dates: start: 20100305
  4. LEXAPRO [Concomitant]
     Dosage: UNK
     Dates: start: 20060101, end: 20100101
  5. YAZ [Suspect]
     Dosage: UNK
     Dates: start: 20100108
  6. YASMIN [Suspect]
     Dosage: UNK
     Dates: start: 20091030
  7. YAZ [Suspect]
     Indication: PREMENSTRUAL SYNDROME
     Dosage: UNK
     Dates: start: 20091030
  8. YASMIN [Suspect]
     Indication: PREMENSTRUAL SYNDROME
     Dosage: UNK
     Dates: start: 20080421
  9. YAZ [Suspect]
     Dosage: UNK
     Dates: start: 20091215
  10. YAZ [Suspect]
     Dosage: UNK
     Dates: start: 20100305
  11. YASMIN [Suspect]
     Dosage: UNK
     Dates: start: 20100412
  12. YASMIN [Suspect]
     Dosage: UNK
     Dates: start: 20091215
  13. YAZ [Suspect]
     Dosage: UNK
     Dates: start: 20100126
  14. YAZ [Suspect]
     Dosage: UNK
     Dates: start: 20100412
  15. YASMIN [Suspect]
     Dosage: UNK
     Dates: start: 20100108
  16. YAZ [Suspect]
     Dosage: UNK
     Dates: start: 20091103
  17. YASMIN [Suspect]
     Dosage: UNK
     Dates: start: 20100126

REACTIONS (4)
  - CHOLECYSTITIS ACUTE [None]
  - MENTAL DISORDER [None]
  - ABDOMINAL PAIN [None]
  - INJURY [None]
